FAERS Safety Report 15473489 (Version 1)
Quarter: 2018Q4

REPORT INFORMATION
  Report Type: Spontaneous
  Country: GB (occurrence: GB)
  Receive Date: 20181008
  Receipt Date: 20181008
  Transmission Date: 20190205
  Serious: Yes (Other)
  Sender: FDA-Public Use
  Company Number: GB-PFIZER INC-2018398982

PATIENT
  Age: 27 Year
  Sex: Female

DRUGS (2)
  1. DOXYCYCLINE HYCLATE. [Suspect]
     Active Substance: DOXYCYCLINE HYCLATE
     Dosage: 100 MG, 1X/DAY
     Route: 048
     Dates: end: 20170930
  2. DAPSONE. [Concomitant]
     Active Substance: DAPSONE
     Dosage: 50 MG, 1/XDAY
     Route: 048
     Dates: start: 20180201

REACTIONS (2)
  - Intracranial pressure increased [Not Recovered/Not Resolved]
  - Papilloedema [Unknown]

NARRATIVE: CASE EVENT DATE: 20170301
